FAERS Safety Report 9819798 (Version 2)
Quarter: 2014Q1

REPORT INFORMATION
  Report Type: Report from Study
  Country: US (occurrence: US)
  Receive Date: 20140116
  Receipt Date: 20140213
  Transmission Date: 20141002
  Serious: Yes (Life-Threatening, Hospitalization, Disabling, Other)
  Sender: FDA-Public Use
  Company Number: US-BRISTOL-MYERS SQUIBB COMPANY-19973981

PATIENT
  Age: 49 Year
  Sex: 0

DRUGS (12)
  1. ARIPIPRAZOLE [Suspect]
     Dosage: BEGAN ARIPIPRAZOLE 2 MG ON 9/27/13.
     Dates: start: 20130717
  2. ATENOLOL [Concomitant]
  3. ATORVASTATIN [Concomitant]
  4. CITALOPRAM [Concomitant]
  5. LISINOPRIL + HCTZ [Concomitant]
     Dosage: 12.5
  6. TRAZODONE HCL [Concomitant]
  7. ASA [Concomitant]
  8. GABAPENTIN [Concomitant]
  9. ESOMEPRAZOLE MAGNESIUM [Concomitant]
  10. NAPROXEN [Concomitant]
  11. HYDROCODONE + ACETAMINOPHEN [Concomitant]
     Dosage: 1 DF= 500 UNIT NOS?HYDROCODONE 5
  12. PLAVIX [Concomitant]

REACTIONS (2)
  - Transient ischaemic attack [Recovered/Resolved]
  - Sensory loss [Recovered/Resolved]
